FAERS Safety Report 7398798-6 (Version None)
Quarter: 2011Q2

REPORT INFORMATION
  Report Type: 
  Country: None (occurrence: None)
  Receive Date: 20110407
  Receipt Date: 20110331
  Transmission Date: 20111010
  Serious: Yes (Hospitalization, Other)
  Sender: FDA-Public Use
  Company Number: US-ASTRAZENECA-2007UW12326

PATIENT
  Age: 18443 Day
  Sex: Female
  Weight: 108.9 kg

DRUGS (49)
  1. SEROQUEL [Suspect]
     Route: 048
     Dates: start: 20031111
  2. LEXAPRO [Concomitant]
     Indication: INSOMNIA
     Dates: start: 20040401
  3. ALLOPURINOL [Concomitant]
     Dates: start: 20040401
  4. BUSPAR [Concomitant]
     Indication: INSOMNIA
     Dates: start: 20031111
  5. ZANAFLEX [Concomitant]
     Dates: start: 20040719
  6. WELLBUTRIN XL [Concomitant]
     Dates: start: 20030101
  7. CELEXA [Concomitant]
     Dates: start: 20091123
  8. RANITIDINE [Concomitant]
     Dates: start: 20091123
  9. SEROQUEL [Suspect]
     Route: 048
     Dates: start: 20030101, end: 20070101
  10. SEROQUEL [Suspect]
     Route: 048
     Dates: start: 20031111
  11. SEROQUEL [Suspect]
     Route: 048
     Dates: start: 20031111
  12. SEROQUEL [Suspect]
     Route: 048
     Dates: start: 20031111
  13. SEROQUEL [Suspect]
     Route: 048
     Dates: start: 20031111
  14. SEROQUEL [Suspect]
     Route: 048
     Dates: start: 20031111
  15. LISINOPRIL AND HYDROCHLOROTHIAZIDE [Concomitant]
     Indication: HYPERTENSION
     Dosage: 20 MG OR 25 MG  1 DAILY
     Dates: start: 20031111
  16. SEROQUEL [Suspect]
     Indication: DEPRESSION
     Route: 048
     Dates: start: 20020101, end: 20060808
  17. LEXAPRO [Concomitant]
     Indication: DEPRESSION
     Dates: start: 20040401
  18. TOPAMAX [Concomitant]
     Dosage: 50 MG -200 MG
     Dates: start: 20041221
  19. LIDODERM [Concomitant]
     Dates: start: 20090924
  20. CYCLOBENZAPRINE [Concomitant]
     Dates: start: 20090901
  21. SEROQUEL [Suspect]
     Indication: SLEEP DISORDER
     Route: 048
     Dates: start: 20020101, end: 20060808
  22. SEROQUEL [Suspect]
     Route: 048
     Dates: start: 20030101, end: 20070101
  23. WELLBUTRIN XL [Concomitant]
     Indication: INSOMNIA
     Dates: start: 20031111
  24. WELLBUTRIN XL [Concomitant]
     Dates: start: 20030101
  25. NEURONTIN [Concomitant]
     Dosage: 600MG TO 2400 MG
     Dates: start: 20040617
  26. CRESTOR [Concomitant]
     Dates: start: 20041221
  27. LYRICA [Concomitant]
     Dates: start: 20100601
  28. SEROQUEL [Suspect]
     Route: 048
     Dates: start: 20030101, end: 20070101
  29. SEROQUEL [Suspect]
     Route: 048
     Dates: start: 20031111
  30. AMITRIPTYLINE [Concomitant]
     Dates: start: 20091123
  31. ATIVAN [Concomitant]
     Indication: ANXIETY
     Dates: start: 20091123
  32. SEROQUEL [Suspect]
     Route: 048
     Dates: start: 20030101, end: 20070101
  33. SEROQUEL [Suspect]
     Route: 048
     Dates: start: 20031111
  34. SEROQUEL [Suspect]
     Route: 048
     Dates: start: 20031111
  35. DICLOFENAC SODIUM [Concomitant]
     Dates: start: 20040318
  36. DICLOFENAC SODIUM [Concomitant]
     Dosage: 50 MG TWICE DAILY
     Dates: start: 20091123
  37. BUSPAR [Concomitant]
     Indication: DEPRESSION
     Dates: start: 20031111
  38. CRESTOR [Concomitant]
     Dates: start: 20091123
  39. NAPROSYN [Concomitant]
  40. CALTRATE [Concomitant]
     Dates: start: 20091123
  41. SEROQUEL [Suspect]
     Indication: AFFECTIVE DISORDER
     Route: 048
     Dates: start: 20020101, end: 20060808
  42. SEROQUEL [Suspect]
     Indication: BIPOLAR DISORDER
     Route: 048
     Dates: start: 20020101, end: 20060808
  43. SEROQUEL [Suspect]
     Indication: INSOMNIA
     Route: 048
     Dates: start: 20020101, end: 20060808
  44. SEROQUEL [Suspect]
     Route: 048
     Dates: start: 20030101, end: 20070101
  45. SEROQUEL [Suspect]
     Route: 048
     Dates: start: 20031111
  46. COLACE [Concomitant]
     Dates: start: 20040216
  47. WELLBUTRIN XL [Concomitant]
     Indication: DEPRESSION
     Dates: start: 20031111
  48. PRILOSEC [Concomitant]
     Dates: start: 20040719
  49. CLINORIL [Concomitant]
     Dates: start: 20030101

REACTIONS (8)
  - OBESITY [None]
  - ACUTE RESPIRATORY FAILURE [None]
  - BRONCHITIS [None]
  - CHRONIC OBSTRUCTIVE PULMONARY DISEASE [None]
  - DIABETIC NEUROPATHY [None]
  - DIABETIC COMPLICATION [None]
  - TYPE 2 DIABETES MELLITUS [None]
  - PNEUMONIA [None]
